FAERS Safety Report 12419651 (Version 1)
Quarter: 2016Q2

REPORT INFORMATION
  Report Type: Spontaneous
  Country: US (occurrence: US)
  Receive Date: 20160531
  Receipt Date: 20160531
  Transmission Date: 20160815
  Serious: Yes (Other)
  Sender: FDA-Public Use
  Company Number: US-TEVA-604166USA

PATIENT
  Age: 63 Year
  Sex: Female
  Weight: 71.73 kg

DRUGS (2)
  1. FLUVAX [Suspect]
     Active Substance: INFLUENZA VIRUS VACCINE
     Dates: start: 20151016
  2. AMLODIPINE W/BENAZEPRIL [Suspect]
     Active Substance: AMLODIPINE BESYLATE\BENAZEPRIL HYDROCHLORIDE
     Dosage: 5MG-40MG
     Route: 048
     Dates: start: 20151016

REACTIONS (7)
  - Swollen tongue [Recovering/Resolving]
  - Tongue movement disturbance [Recovering/Resolving]
  - Dysphagia [Recovering/Resolving]
  - Speech disorder [Recovering/Resolving]
  - Injection site pain [Recovering/Resolving]
  - Feeling abnormal [Recovering/Resolving]
  - Anaphylactic reaction [Recovering/Resolving]

NARRATIVE: CASE EVENT DATE: 20151016
